FAERS Safety Report 6818599-4 (Version None)
Quarter: 2010Q3

REPORT INFORMATION
  Report Type: 
  Country: None (occurrence: None)
  Receive Date: 20100706
  Receipt Date: 20090320
  Transmission Date: 20110219
  Serious: No
  Sender: FDA-Public Use
  Company Number: US-PFIZER INC-2009164779

PATIENT
  Age: 83 Year
  Sex: Female

DRUGS (3)
  1. AZITHROMYCIN [Suspect]
     Indication: SINUSITIS
     Dosage: UNK
  2. MECLIZINE HCL [Suspect]
     Dosage: UNK
  3. PLAVIX [Suspect]
     Indication: THROMBOSIS
     Dosage: 75 MG, 1X/DAY
     Route: 048
     Dates: start: 20081101

REACTIONS (1)
  - DIZZINESS [None]
